FAERS Safety Report 14502601 (Version 2)
Quarter: 2018Q4

REPORT INFORMATION
  Report Type: Spontaneous
  Country: RU (occurrence: RU)
  Receive Date: 20180208
  Receipt Date: 20181005
  Transmission Date: 20190204
  Serious: Yes (Hospitalization, Other)
  Sender: FDA-Public Use
  Company Number: RU-ASTRAZENECA-2018SE14373

PATIENT
  Age: 81 Year
  Sex: Female
  Weight: 60 kg

DRUGS (10)
  1. LORISTA [Concomitant]
     Active Substance: LOSARTAN POTASSIUM
  2. GLICLAZIDE [Concomitant]
     Active Substance: GLICLAZIDE
  3. WARFARIN [Concomitant]
     Active Substance: WARFARIN
  4. SONAPAX [Concomitant]
  5. BETAHISTINE [Concomitant]
     Active Substance: BETAHISTINE
  6. CORDARONE [Concomitant]
     Active Substance: AMIODARONE HYDROCHLORIDE
  7. MEXIDOL [Concomitant]
     Indication: ISCHAEMIC STROKE
  8. BRILINTA [Suspect]
     Active Substance: TICAGRELOR
     Indication: MYOCARDIAL INFARCTION
     Route: 048
     Dates: start: 201708
  9. CARDIOMAGNYL [Concomitant]
     Active Substance: ASPIRIN\MAGNESIUM HYDROXIDE
     Dates: start: 20180131
  10. ATORVASTATIN [Concomitant]
     Active Substance: ATORVASTATIN

REACTIONS (4)
  - Ischaemic stroke [Recovered/Resolved]
  - Off label use [Recovered/Resolved]
  - Intentional product misuse [Not Recovered/Not Resolved]
  - Chest pain [Not Recovered/Not Resolved]

NARRATIVE: CASE EVENT DATE: 201708
